FAERS Safety Report 18344475 (Version 1)
Quarter: 2020Q4

REPORT INFORMATION
  Report Type: Spontaneous
  Country: US (occurrence: US)
  Receive Date: 20201005
  Receipt Date: 20201005
  Transmission Date: 20210114
  Serious: Yes (Hospitalization)
  Sender: FDA-Public Use
  Company Number: None

PATIENT
  Age: 78 Year
  Sex: Male
  Weight: 101.25 kg

DRUGS (18)
  1. FINASTERIDE. [Concomitant]
     Active Substance: FINASTERIDE
  2. LOSARTAN. [Concomitant]
     Active Substance: LOSARTAN
  3. TESTOSTERONE GEL [Concomitant]
     Active Substance: TESTOSTERONE
  4. MIRALAX [Concomitant]
     Active Substance: POLYETHYLENE GLYCOL 3350
  5. PRESERVISION [Concomitant]
     Active Substance: MINERALS\VITAMINS
  6. MECLIZINE [Concomitant]
     Active Substance: MECLIZINE HYDROCHLORIDE
  7. CHLORTHALIDONE. [Concomitant]
     Active Substance: CHLORTHALIDONE
  8. DOCUSATE [Concomitant]
     Active Substance: DOCUSATE
  9. MULTI-VITAMIN [Concomitant]
     Active Substance: .ALPHA.-TOCOPHEROL ACETATE, DL-\ASCORBIC ACID\CYANOCOBALAMIN\FLUORIDE ION\FOLIC ACID\NIACIN\PYRIDOXINE\RIBOFLAVIN\THIAMINE\VITAMIN A\VITAMIN D
  10. CARVEDILOL. [Concomitant]
     Active Substance: CARVEDILOL
  11. CYANOCOBALAMIN. [Concomitant]
     Active Substance: CYANOCOBALAMIN
  12. ACYCLOVIR 800MG TABLET [Suspect]
     Active Substance: ACYCLOVIR
     Indication: HERPES ZOSTER
     Dosage: ?          QUANTITY:1 TABLET(S);OTHER FREQUENCY:5 TIMES A DAY;?
     Route: 048
     Dates: start: 20200825, end: 20200828
  13. FLONASE [Concomitant]
     Active Substance: FLUTICASONE PROPIONATE
  14. ASPIRIN. [Concomitant]
     Active Substance: ASPIRIN
  15. CALCIUM [Concomitant]
     Active Substance: CALCIUM
  16. TAMSULOSIN [Concomitant]
     Active Substance: TAMSULOSIN
  17. FISH OIL [Concomitant]
     Active Substance: FISH OIL
  18. ELIQUIS [Concomitant]
     Active Substance: APIXABAN

REACTIONS (2)
  - Cerebrovascular accident [None]
  - Adverse event [None]

NARRATIVE: CASE EVENT DATE: 20200922
